FAERS Safety Report 7387030-5 (Version None)
Quarter: 2011Q1

REPORT INFORMATION
  Report Type: 
  Country: None (occurrence: None)
  Receive Date: 20110331
  Receipt Date: 20100205
  Transmission Date: 20110831
  Serious: No
  Sender: FDA-Public Use
  Company Number: US-BAYER-201013909NA

PATIENT
  Sex: Female
  Weight: 59.091 kg

DRUGS (2)
  1. MIRENA [Suspect]
     Indication: CONTRACEPTION
     Dosage: 20 ?G/D, CONT
     Route: 015
     Dates: start: 20091101
  2. LEVOXYL [Concomitant]

REACTIONS (3)
  - PROCEDURAL PAIN [None]
  - DEVICE DISLOCATION [None]
  - POST PROCEDURAL HAEMORRHAGE [None]
